FAERS Safety Report 5628059-4 (Version None)
Quarter: 2008Q1

REPORT INFORMATION
  Report Type: 
  Country: None (occurrence: None)
  Receive Date: 20080215
  Receipt Date: 20070410
  Transmission Date: 20080703
  Serious: Yes (Other)
  Sender: FDA-Public Use
  Company Number: US-ASTRAZENECA-2007UW02146

PATIENT
  Age: 483 Month
  Sex: Female
  Weight: 95.5 kg

DRUGS (2)
  1. SEROQUEL [Suspect]
     Indication: BIPOLAR DISORDER
     Route: 048
     Dates: start: 20060201, end: 20061101
  2. DEPAKOTE [Concomitant]
     Dates: start: 20060901

REACTIONS (13)
  - ARTHRALGIA [None]
  - AURICULAR SWELLING [None]
  - BRONCHIAL IRRITATION [None]
  - CHILLS [None]
  - HEPATITIS C [None]
  - HYPOTHYROIDISM [None]
  - MUSCULAR WEAKNESS [None]
  - MYALGIA [None]
  - PANCREATITIS [None]
  - RASH [None]
  - SALIVARY GLAND CYST [None]
  - TYPE 2 DIABETES MELLITUS [None]
  - URTICARIA [None]
